FAERS Safety Report 10461806 (Version 2)
Quarter: 2014Q4

REPORT INFORMATION
  Report Type: Spontaneous
  Country: US (occurrence: US)
  Receive Date: 20140918
  Receipt Date: 20141201
  Transmission Date: 20150528
  Serious: No
  Sender: FDA-Public Use
  Company Number: US-009507513-1409USA003390

PATIENT
  Sex: Female
  Weight: 74.83 kg

DRUGS (5)
  1. [THERAPY UNSPECIFIED] [Concomitant]
     Active Substance: UNSPECIFIED INGREDIENT
     Dosage: 20 MG, UNK
  2. LEXAPRO [Concomitant]
     Active Substance: ESCITALOPRAM OXALATE
     Dosage: 6 MG, UNK
  3. ASMANEX [Suspect]
     Active Substance: MOMETASONE FUROATE
     Dosage: ONE INHALATION ONCE A DAY
     Route: 055
     Dates: start: 201408
  4. DONEPEZIL HYDROCHLORIDE. [Concomitant]
     Active Substance: DONEPEZIL HYDROCHLORIDE
     Dosage: 10 MG, UNK
  5. SEREVENT [Concomitant]
     Active Substance: SALMETEROL XINAFOATE
     Indication: CHRONIC OBSTRUCTIVE PULMONARY DISEASE

REACTIONS (3)
  - Product quality issue [Unknown]
  - No adverse event [Unknown]
  - Drug dose omission [Unknown]

NARRATIVE: CASE EVENT DATE: 2014
